FAERS Safety Report 16382095 (Version 1)
Quarter: 2019Q2

REPORT INFORMATION
  Report Type: Spontaneous
  Country: CH (occurrence: CH)
  Receive Date: 20190603
  Receipt Date: 20190603
  Transmission Date: 20190711
  Serious: Yes (Hospitalization)
  Sender: FDA-Public Use
  Company Number: CH-SA-2019SA147079

PATIENT
  Age: 86 Year
  Sex: Female
  Weight: 53 kg

DRUGS (4)
  1. LANTUS [Suspect]
     Active Substance: INSULIN GLARGINE
     Dosage: NOT KNOWN ADMINISTERED DOSAGE, IN TOTAL
     Route: 058
     Dates: start: 20190407, end: 20190407
  2. DAFALGAN [Concomitant]
     Active Substance: ACETAMINOPHEN
     Dosage: 1 ZZ_G, UNK
     Route: 048
  3. SYMFONA [GINKGO BILOBA ACETONE EXTRACT] [Concomitant]
     Dosage: 2 ZZ_DF, UNK
     Route: 048
  4. CIPRALEX [Concomitant]
     Active Substance: ESCITALOPRAM OXALATE
     Dosage: 2 ZZ_DF, UNK
     Route: 048

REACTIONS (3)
  - Hypoglycaemia [Recovered/Resolved]
  - Altered state of consciousness [Recovered/Resolved]
  - Drug dispensed to wrong patient [Recovered/Resolved]

NARRATIVE: CASE EVENT DATE: 20190407
